FAERS Safety Report 11871751 (Version 1)
Quarter: 2015Q4

REPORT INFORMATION
  Report Type: Spontaneous
  Country: TH (occurrence: TH)
  Receive Date: 20151228
  Receipt Date: 20151228
  Transmission Date: 20160305
  Serious: Yes (Hospitalization, Other)
  Sender: FDA-Public Use
  Company Number: TH-BAUSCH-BL-2015-030815

PATIENT
  Age: 30 Year
  Sex: Male
  Weight: 65 kg

DRUGS (9)
  1. ARTEMETHER 80 MG, LUMEFANTRINE 480 MG [Concomitant]
     Indication: PRODUCT USED FOR UNKNOWN INDICATION
     Dosage: 240/1440 MG IN 3 DOSES
  2. CHLOROQUINE. [Concomitant]
     Active Substance: CHLOROQUINE
     Indication: PLASMODIUM VIVAX INFECTION
  3. ARTESUNATE [Concomitant]
     Active Substance: ARTESUNATE
     Indication: PRODUCT USED FOR UNKNOWN INDICATION
     Dosage: 2.4 MG/KG BODY WEIGHT AT 0, 12, 24 AND 48HRS (4 DOSES)
  4. MEROPENEM. [Concomitant]
     Active Substance: MEROPENEM
     Indication: PRODUCT USED FOR UNKNOWN INDICATION
  5. CEFTRIAXONE. [Suspect]
     Active Substance: CEFTRIAXONE
     Indication: PRODUCT USED FOR UNKNOWN INDICATION
     Route: 065
  6. DEXAMETHASONE. [Suspect]
     Active Substance: DEXAMETHASONE
     Indication: AUTOIMMUNE HAEMOLYTIC ANAEMIA
     Route: 065
  7. AMIKACIN 500 MG [Suspect]
     Active Substance: AMIKACIN
     Indication: PRODUCT USED FOR UNKNOWN INDICATION
     Dosage: 7.5 MG/KG 8-HOURLY WAS ADDED ON DAY 6
     Route: 065
  8. QUININE [Concomitant]
     Active Substance: QUININE
     Indication: MALARIA
     Dosage: FIVE DOSES
     Route: 042
  9. AZITHROMYCIN [Concomitant]
     Active Substance: AZITHROMYCIN ANHYDROUS
     Indication: MALARIA

REACTIONS (3)
  - Mucormycosis [Recovering/Resolving]
  - Haemolytic anaemia [Recovered/Resolved]
  - Renal injury [Unknown]
